FAERS Safety Report 7502257-7 (Version None)
Quarter: 2011Q2

REPORT INFORMATION
  Report Type: 
  Country: None (occurrence: None)
  Receive Date: 20110525
  Receipt Date: 20110512
  Transmission Date: 20111010
  Serious: Yes (Death, Hospitalization)
  Sender: FDA-Public Use
  Company Number: ES-SANOFI-AVENTIS-2011SA023629

PATIENT
  Age: 81 Year
  Sex: Female

DRUGS (6)
  1. DURAGESIC-100 [Concomitant]
     Indication: METASTASES TO BONE
     Route: 048
     Dates: end: 20110225
  2. MULTAQ [Suspect]
     Indication: ATRIAL FIBRILLATION
     Route: 048
     Dates: start: 20110110, end: 20110225
  3. FUROSEMIDA [Concomitant]
     Indication: HYPERTENSION
     Route: 048
     Dates: start: 20110225
  4. PAROXETINE HCL [Concomitant]
     Indication: DEPRESSION
     Route: 048
     Dates: start: 20110225
  5. PANTOPRAZOLE [Concomitant]
     Indication: HIATUS HERNIA
     Route: 048
     Dates: start: 20110225
  6. NITROGLICERINA [Concomitant]
     Indication: ISCHAEMIC CARDIOMYOPATHY
     Route: 048
     Dates: start: 20110225

REACTIONS (2)
  - HEPATIC FAILURE [None]
  - ARRHYTHMIA [None]
